FAERS Safety Report 16636567 (Version 1)
Quarter: 2019Q3

REPORT INFORMATION
  Report Type: Spontaneous
  Country: SI (occurrence: SI)
  Receive Date: 20190726
  Receipt Date: 20190726
  Transmission Date: 20191004
  Serious: Yes (Hospitalization)
  Sender: FDA-Public Use
  Company Number: SI-BAYER-2019-134451

PATIENT
  Age: 78 Year
  Sex: Female

DRUGS (8)
  1. ALDACTONE [Concomitant]
     Active Substance: SPIRONOLACTONE
     Dosage: 25 MG, QD
  2. OXYGEN. [Concomitant]
     Active Substance: OXYGEN
     Dosage: UNK L
  3. SANVAL [Concomitant]
     Active Substance: ZOLPIDEM TARTRATE
     Dosage: UNK
  4. XANAX [Concomitant]
     Active Substance: ALPRAZOLAM
     Dosage: 0.25 MG, PRN
  5. FRAGMIN [Concomitant]
     Active Substance: DALTEPARIN SODIUM
     Dosage: 1000 U, QD
  6. EDEMID [Concomitant]
     Active Substance: FUROSEMIDE
     Dosage: 40 MG, BID
  7. ADEMPAS [Suspect]
     Active Substance: RIOCIGUAT
     Indication: PULMONARY HYPERTENSION
     Dosage: 1 MG, Q8HR
     Dates: start: 20151102, end: 20151116
  8. PURINETHOL [Concomitant]
     Active Substance: MERCAPTOPURINE
     Indication: ACUTE MYELOID LEUKAEMIA
     Dosage: 2 DF, UNK

REACTIONS (11)
  - Respiratory failure [Recovering/Resolving]
  - Dyspnoea [Not Recovered/Not Resolved]
  - Head injury [Recovering/Resolving]
  - Gastrointestinal oedema [Recovering/Resolving]
  - Fall [Recovered/Resolved with Sequelae]
  - Vertigo [None]
  - Cardiac failure [Recovering/Resolving]
  - Hypotension [None]
  - Feeling abnormal [Recovering/Resolving]
  - Dyspnoea [Recovering/Resolving]
  - Oliguria [Recovering/Resolving]

NARRATIVE: CASE EVENT DATE: 20151116
